FAERS Safety Report 21396419 (Version 1)
Quarter: 2022Q3

REPORT INFORMATION
  Report Type: Spontaneous
  Country: US (occurrence: US)
  Receive Date: 20220930
  Receipt Date: 20220930
  Transmission Date: 20221027
  Serious: Yes (Other)
  Sender: FDA-Public Use
  Company Number: US-LEO Pharma-345581

PATIENT
  Sex: Female

DRUGS (4)
  1. ADBRY [Suspect]
     Active Substance: TRALOKINUMAB-LDRM
     Indication: Dermatitis allergic
     Dosage: GIVEN ON DAY ONE.
     Route: 058
     Dates: start: 20220913
  2. ADBRY [Suspect]
     Active Substance: TRALOKINUMAB-LDRM
     Indication: Dermatitis allergic
     Dosage: GIVEN ON DAY ONE.
     Route: 058
     Dates: start: 20220913
  3. ADBRY [Suspect]
     Active Substance: TRALOKINUMAB-LDRM
     Indication: Dermatitis allergic
     Dosage: GIVEN ON DAY ONE.
     Route: 058
     Dates: start: 20220913
  4. DEVICE [Suspect]
     Active Substance: DEVICE
     Indication: Dermatitis allergic

REACTIONS (7)
  - Skin burning sensation [Recovered/Resolved]
  - Skin burning sensation [Recovered/Resolved]
  - Neuralgia [Recovered/Resolved]
  - Pruritus [Recovered/Resolved]
  - Throat tightness [Recovered/Resolved]
  - Pruritus [Recovered/Resolved]
  - Throat tightness [Recovered/Resolved]

NARRATIVE: CASE EVENT DATE: 20220915
